FAERS Safety Report 6356094-X (Version None)
Quarter: 2009Q3

REPORT INFORMATION
  Report Type: 
  Country: None (occurrence: None)
  Receive Date: 20090915
  Receipt Date: 20090910
  Transmission Date: 20100115
  Serious: Yes (Disabling, Other)
  Sender: FDA-Public Use
  Company Number: FR-BRISTOL-MYERS SQUIBB COMPANY-14730626

PATIENT
  Age: 77 Year
  Sex: Male
  Weight: 78 kg

DRUGS (6)
  1. MEGACE [Suspect]
     Dosage: INTRODUCED 15 DAYS AGO.
     Route: 048
     Dates: start: 20090715
  2. SECTRAL [Concomitant]
  3. EZETROL [Concomitant]
  4. KARDEGIC [Concomitant]
  5. ZOMETA [Concomitant]
  6. ZOLADEX [Concomitant]

REACTIONS (2)
  - GAIT DISTURBANCE [None]
  - HAEMATURIA [None]
